FAERS Safety Report 9439880 (Version 4)
Quarter: 2013Q3

REPORT INFORMATION
  Report Type: Spontaneous
  Country: SE (occurrence: SE)
  Receive Date: 20130805
  Receipt Date: 20130917
  Transmission Date: 20140515
  Serious: Yes (Other)
  Sender: FDA-Public Use
  Company Number: SE-JNJFOC-20130716250

PATIENT
  Age: 22 Year
  Sex: Female

DRUGS (1)
  1. CILEST [Suspect]
     Indication: CONTRACEPTION
     Route: 065
     Dates: end: 20130712

REACTIONS (5)
  - Unintended pregnancy [Recovered/Resolved]
  - Exposure during pregnancy [Recovered/Resolved]
  - Abortion spontaneous [Recovered/Resolved]
  - Product quality issue [Unknown]
  - Menstruation delayed [Unknown]
